FAERS Safety Report 15011216 (Version 3)
Quarter: 2018Q3

REPORT INFORMATION
  Report Type: Report from Study
  Country: US (occurrence: US)
  Receive Date: 20180614
  Receipt Date: 20180724
  Transmission Date: 20181010
  Serious: Yes (Hospitalization)
  Sender: FDA-Public Use
  Company Number: US-BIOGEN-2018BI00595597

PATIENT
  Age: 39 Year
  Sex: Female
  Weight: 58.8 kg

DRUGS (13)
  1. ZOFRAN [Concomitant]
     Active Substance: ONDANSETRON HYDROCHLORIDE
     Route: 042
     Dates: start: 20180523
  2. CYMBALTA [Concomitant]
     Active Substance: DULOXETINE HYDROCHLORIDE
     Indication: PRODUCT USED FOR UNKNOWN INDICATION
     Route: 048
     Dates: start: 20180524
  3. AMPHOTERICIN BLADDER [Concomitant]
     Indication: BLADDER IRRIGATION
     Dosage: 50MG/1000ML
     Route: 065
     Dates: start: 20180524, end: 20180528
  4. HEPARIN [Concomitant]
     Active Substance: HEPARIN SODIUM
     Indication: DEEP VEIN THROMBOSIS
     Route: 058
     Dates: start: 20180523
  5. KEFLEX [Concomitant]
     Active Substance: CEPHALEXIN
     Indication: PRODUCT USED FOR UNKNOWN INDICATION
     Route: 048
     Dates: start: 20180529
  6. MORPHINE [Concomitant]
     Active Substance: MORPHINE
     Indication: CHEST PAIN
     Dosage: Q1H PRN FOR CHEST PAIN
     Route: 042
     Dates: start: 20180523
  7. MORPHINE [Concomitant]
     Active Substance: MORPHINE
     Route: 042
     Dates: start: 20180523, end: 20180523
  8. MORPHINE [Concomitant]
     Active Substance: MORPHINE
     Dosage: Q2H PRN FOR MODERATE TO SEVERE PAIN
     Route: 042
     Dates: start: 20180523
  9. TYLENOL [Concomitant]
     Active Substance: ACETAMINOPHEN
     Indication: PAIN
     Route: 048
     Dates: start: 20180523
  10. NEURONTIN [Concomitant]
     Active Substance: GABAPENTIN
     Indication: PRODUCT USED FOR UNKNOWN INDICATION
     Route: 048
     Dates: start: 20180524
  11. LIORESAL [Concomitant]
     Active Substance: BACLOFEN
     Indication: PRODUCT USED FOR UNKNOWN INDICATION
     Route: 048
     Dates: start: 20180524
  12. TYSABRI [Suspect]
     Active Substance: NATALIZUMAB
     Indication: MULTIPLE SCLEROSIS
     Route: 065
  13. ZOFRAN [Concomitant]
     Active Substance: ONDANSETRON HYDROCHLORIDE
     Indication: NAUSEA
     Route: 042
     Dates: start: 20180523, end: 20180523

REACTIONS (10)
  - Tachycardia [Unknown]
  - Urosepsis [Recovered/Resolved]
  - Pyelonephritis [Unknown]
  - Bladder outlet obstruction [Unknown]
  - Hydronephrosis [Unknown]
  - Acute kidney injury [Unknown]
  - Neurogenic bladder [Unknown]
  - Encephalopathy [Unknown]
  - Multiple sclerosis relapse [Unknown]
  - Leukocytosis [Unknown]

NARRATIVE: CASE EVENT DATE: 201805
